FAERS Safety Report 6646154-8 (Version None)
Quarter: 2010Q1

REPORT INFORMATION
  Report Type: 
  Country: None (occurrence: None)
  Receive Date: 20100323
  Receipt Date: 20100310
  Transmission Date: 20100710
  Serious: Yes (Hospitalization, Other)
  Sender: FDA-Public Use
  Company Number: US-ROCHE-688441

PATIENT
  Sex: Female

DRUGS (9)
  1. BEVACIZUMAB [Suspect]
     Indication: BREAST CANCER
     Dosage: CYCLE 2. LAST ADMINISTERED DATE: 10 DECEMBER 2009
     Route: 065
     Dates: start: 20091119
  2. DOCETAXEL [Suspect]
     Indication: BREAST CANCER
     Dosage: CYCLE 2. LAST ADMINISTERED DATE: 10 DECEMBER 2009
     Route: 065
     Dates: start: 20091119
  3. CYCLOPHOSPHAMIDE [Suspect]
     Indication: BREAST CANCER
     Dosage: CYCLE 2. LAST ADMINISTERED DATE: 10 DECEMBER 2009.
     Route: 065
     Dates: start: 20091119
  4. LOPERAMIDE [Concomitant]
  5. FUROSEMIDE [Concomitant]
  6. MIRTAZAPINE [Concomitant]
  7. CYMBALTA [Concomitant]
  8. ABILIFY [Concomitant]
  9. ZOCOR [Concomitant]

REACTIONS (3)
  - ANAEMIA [None]
  - DEHYDRATION [None]
  - NAUSEA [None]
